FAERS Safety Report 9820224 (Version 1)
Quarter: 2014Q1

REPORT INFORMATION
  Report Type: Spontaneous
  Country: US (occurrence: US)
  Receive Date: 20140116
  Receipt Date: 20140116
  Transmission Date: 20141002
  Serious: No
  Sender: FDA-Public Use
  Company Number: US-BAYER-2014-007536

PATIENT
  Age: 59 Year
  Sex: Female
  Weight: 48.98 kg

DRUGS (5)
  1. ALEVE TABLET [Suspect]
     Indication: BACK PAIN
     Dosage: 1 DF, PRN
     Route: 048
     Dates: start: 2011
  2. BAYER CHEWABLE LOW DOSE BABY ASPIRIN TABLET CHERRY [Suspect]
     Indication: CEREBROVASCULAR ACCIDENT PROPHYLAXIS
     Dosage: 1 DF, QD
     Route: 048
     Dates: start: 200610
  3. ATENOLOL [Concomitant]
  4. IRON [Concomitant]
  5. VITAMIN D [Concomitant]

REACTIONS (2)
  - Drug ineffective [None]
  - Off label use [None]
